FAERS Safety Report 4681455-4 (Version None)
Quarter: 2005Q2

REPORT INFORMATION
  Report Type: 
  Country: None (occurrence: None)
  Receive Date: 20050601
  Receipt Date: 20050517
  Transmission Date: 20051028
  Serious: Yes (Hospitalization)
  Sender: FDA-Public Use
  Company Number: USA050495986

PATIENT
  Age: 78 Year
  Sex: Female

DRUGS (13)
  1. CYMBALTA [Suspect]
     Indication: DEPRESSION
     Dosage: 60 MG
  2. SYNTHROID [Concomitant]
  3. PEPCID [Concomitant]
  4. PLETAL [Concomitant]
  5. CORDARONE [Concomitant]
  6. LASIX [Concomitant]
  7. ASPIRIN [Concomitant]
  8. NORVASC [Concomitant]
  9. SLOW MAG (MAGNESIUM CHLORIDE ANHYDROUS) [Concomitant]
  10. IRON [Concomitant]
  11. TOPROL-XL [Concomitant]
  12. CALCIUM GLUCONATE [Concomitant]
  13. MICRO K (POTASSIUM CHLORIDE) [Concomitant]

REACTIONS (2)
  - BLOOD OSMOLARITY DECREASED [None]
  - HYPONATRAEMIA [None]
